FAERS Safety Report 23600453 (Version 1)
Quarter: 2024Q1

REPORT INFORMATION
  Report Type: Spontaneous
  Country: DE (occurrence: DE)
  Receive Date: 20240306
  Receipt Date: 20240306
  Transmission Date: 20240410
  Serious: Yes (Death, Other)
  Sender: FDA-Public Use
  Company Number: DE-AMGEN-DEUSP2024044254

PATIENT

DRUGS (1)
  1. SOTORASIB [Suspect]
     Active Substance: SOTORASIB
     Indication: Non-small cell lung cancer metastatic
     Dosage: 960 MILLIGRAM
     Route: 065

REACTIONS (11)
  - Death [Fatal]
  - Adverse event [Unknown]
  - Hepatotoxicity [Unknown]
  - Non-small cell lung cancer metastatic [Unknown]
  - Hypertension [Unknown]
  - Musculoskeletal pain [Unknown]
  - Therapy partial responder [Unknown]
  - Alanine aminotransferase increased [Unknown]
  - Aspartate aminotransferase increased [Unknown]
  - Diarrhoea [Unknown]
  - Off label use [Unknown]
